FAERS Safety Report 4951825-5 (Version None)
Quarter: 2006Q1

REPORT INFORMATION
  Report Type: 
  Country: None (occurrence: None)
  Receive Date: 20060320
  Receipt Date: 20060308
  Transmission Date: 20060701
  Serious: Yes (Life-Threatening)
  Sender: FDA-Public Use
  Company Number: 200610351BYL

PATIENT
  Age: 65 Year
  Sex: Male

DRUGS (1)
  1. ASPIRIN [Suspect]
     Dosage: 100 MG, QD, ORAL
     Route: 048

REACTIONS (1)
  - TOXIC EPIDERMAL NECROLYSIS [None]
